FAERS Safety Report 26088727 (Version 1)
Quarter: 2025Q4

REPORT INFORMATION
  Report Type: Spontaneous
  Country: US (occurrence: None)
  Receive Date: 20251125
  Receipt Date: 20251125
  Transmission Date: 20260117
  Serious: Yes (Other)
  Sender: UCB
  Company Number: US-UCBSA-2025073623

PATIENT
  Age: 67 Year
  Weight: 154.65 kg

DRUGS (1)
  1. BIMZELX [Suspect]
     Active Substance: BIMEKIZUMAB-BKZX
     Indication: Psoriasis
     Dosage: 320 MILLIGRAM, EV 2 WEEKS(QOW) (FOR WEEKS 0-16 THEN EVERY 4 WEEKS AS DIRECTED_

REACTIONS (2)
  - Breast operation [Unknown]
  - Off label use [Unknown]
